FAERS Safety Report 15044881 (Version 1)
Quarter: 2018Q2

REPORT INFORMATION
  Report Type: Spontaneous
  Country: DE (occurrence: DE)
  Receive Date: 20180621
  Receipt Date: 20180621
  Transmission Date: 20180711
  Serious: Yes (Hospitalization)
  Sender: FDA-Public Use
  Company Number: DE-TEVA-2018-DE-909889

PATIENT
  Age: 62 Year
  Sex: Male

DRUGS (12)
  1. LACTULOSE. [Concomitant]
     Active Substance: LACTULOSE
     Dosage: 10 ML DAILY;
     Route: 048
  2. URSODEOXYCHOLSAEURE [Concomitant]
     Dosage: 250 MILLIGRAM DAILY;
     Route: 048
  3. TILIDINE/NALOXON [Concomitant]
     Dosage: 50|4 MG, 1-0-1
     Route: 048
  4. PANTOPRAZOLE [Concomitant]
     Active Substance: PANTOPRAZOLE
     Dosage: 40 MILLIGRAM DAILY;
     Route: 048
  5. REKAWAN [Concomitant]
     Active Substance: POTASSIUM CHLORIDE
     Dosage: BY VALUE
     Route: 048
  6. MILGAMMA NA [Concomitant]
     Dosage: 1-0-1,
     Route: 048
  7. LIMPTAR [Concomitant]
     Active Substance: AMINOPHYLLINE\QUININE SULFATE
     Dosage: 200 MILLIGRAM DAILY;
     Route: 048
  8. RIFAXIMIN. [Concomitant]
     Active Substance: RIFAXIMIN
     Route: 048
  9. ASPIRIN. [Concomitant]
     Active Substance: ASPIRIN
     Dosage: 100 MILLIGRAM DAILY;
     Route: 048
  10. ORNITHINE ASPARTATE [Concomitant]
     Active Substance: ORNITHINE ASPARTATE
     Dosage: 3000 MILLIGRAM DAILY;
     Route: 048
  11. FUROSEMIDE. [Suspect]
     Active Substance: FUROSEMIDE
     Dosage: 125 MILLIGRAM DAILY;
     Route: 048
  12. METOPROLOL. [Concomitant]
     Active Substance: METOPROLOL
     Dosage: , 1/2-0-1/2,
     Route: 048

REACTIONS (5)
  - Disturbance in attention [Unknown]
  - Fracture [Unknown]
  - Hypokalaemia [Unknown]
  - Syncope [Unknown]
  - Circulatory collapse [Unknown]
